FAERS Safety Report 20432563 (Version 1)
Quarter: 2022Q1

REPORT INFORMATION
  Report Type: Spontaneous
  Country: CA (occurrence: CA)
  Receive Date: 20220204
  Receipt Date: 20220204
  Transmission Date: 20220423
  Serious: Yes (Other)
  Sender: FDA-Public Use
  Company Number: CA-PFIZER INC-202200148362

PATIENT
  Age: 21 Year
  Sex: Male
  Weight: 57 kg

DRUGS (8)
  1. SOLU-MEDROL [Suspect]
     Active Substance: METHYLPREDNISOLONE SODIUM SUCCINATE
     Dosage: UNK
     Route: 042
     Dates: start: 202112
  2. SOLU-MEDROL [Suspect]
     Active Substance: METHYLPREDNISOLONE SODIUM SUCCINATE
     Dosage: UNK, 3X/DAY
     Dates: start: 202201
  3. INFLIXIMAB [Concomitant]
     Active Substance: INFLIXIMAB
     Dosage: 600 MG (10 MG/KG)
     Dates: start: 20211221
  4. INFLIXIMAB [Concomitant]
     Active Substance: INFLIXIMAB
     Dosage: 590 MG (10 MG/KG)
     Dates: start: 20211229
  5. INFLIXIMAB [Concomitant]
     Active Substance: INFLIXIMAB
     Dosage: 550 MG (10 MG/KG)
     Dates: start: 20220107
  6. MESALAMINE [Concomitant]
     Active Substance: MESALAMINE
     Route: 048
  7. MESALAMINE [Concomitant]
     Active Substance: MESALAMINE
     Route: 054
  8. PREDNISONE [Concomitant]
     Active Substance: PREDNISONE
     Route: 048

REACTIONS (5)
  - Weight decreased [Unknown]
  - C-reactive protein increased [Recovering/Resolving]
  - Drug ineffective [Unknown]
  - COVID-19 [Unknown]
  - Blood albumin decreased [Unknown]

NARRATIVE: CASE EVENT DATE: 20220101
